FAERS Safety Report 9214269 (Version 2)
Quarter: 2013Q2

REPORT INFORMATION
  Report Type: Report from Study
  Country: NL (occurrence: NL)
  Receive Date: 20130405
  Receipt Date: 20130410
  Transmission Date: 20140414
  Serious: Yes (Hospitalization)
  Sender: FDA-Public Use
  Company Number: NL-BAXTER-2013BAX012153

PATIENT
  Age: 61 Year
  Sex: Female
  Weight: 61 kg

DRUGS (21)
  1. ENDOXAN I.V., POEDER VOOR OPLOSSING VOOR INJECTIE 200, 500, 1000 MG [Suspect]
     Indication: DIFFUSE LARGE B-CELL LYMPHOMA
     Route: 042
     Dates: start: 20110530, end: 20110919
  2. RITUXIMAB [Suspect]
     Indication: DIFFUSE LARGE B-CELL LYMPHOMA
     Route: 042
     Dates: start: 20110530, end: 20110919
  3. PREDNISONE [Suspect]
     Indication: DIFFUSE LARGE B-CELL LYMPHOMA
     Dosage: 2X50 MG
     Route: 048
     Dates: start: 20110530, end: 20110923
  4. DOXORUBICIN [Suspect]
     Indication: DIFFUSE LARGE B-CELL LYMPHOMA
     Route: 048
     Dates: start: 20110530, end: 20110919
  5. VINCRISTINE [Suspect]
     Indication: DIFFUSE LARGE B-CELL LYMPHOMA
     Route: 042
     Dates: start: 20110530
  6. VINCRISTINE [Suspect]
     Route: 042
     Dates: start: 20110822, end: 20110919
  7. FILGRASTIM [Suspect]
     Indication: DIFFUSE LARGE B-CELL LYMPHOMA
     Route: 058
     Dates: start: 20110531, end: 20110920
  8. VINBLASTINE SULFATE [Suspect]
     Indication: DIFFUSE LARGE B-CELL LYMPHOMA
     Route: 042
     Dates: start: 20110905, end: 20110919
  9. SULFAMETHOXAZOLE/TRIMETHOPRIM [Concomitant]
     Indication: ANTIBIOTIC PROPHYLAXIS
     Route: 048
     Dates: start: 20110530, end: 20111107
  10. VALACICLOVIR [Concomitant]
     Indication: PROPHYLAXIS
     Route: 048
     Dates: start: 20110530, end: 20111107
  11. ISONIAZIDE [Concomitant]
     Indication: PROPHYLAXIS
     Route: 048
     Dates: start: 20110530, end: 20111107
  12. FUROSEMIDE [Concomitant]
     Indication: CARDIAC FAILURE
     Route: 048
     Dates: start: 20111123, end: 20130224
  13. FUROSEMIDE [Concomitant]
     Route: 048
     Dates: start: 20120209
  14. SPIRONOLACTON [Concomitant]
     Indication: CARDIAC FAILURE
     Route: 048
     Dates: start: 20111219, end: 20120224
  15. SPIRONOLACTON [Concomitant]
     Route: 048
     Dates: start: 20120224
  16. SPIRONOLACTON [Concomitant]
     Route: 048
     Dates: start: 20120509
  17. LISINOPRIL [Concomitant]
     Indication: CARDIAC FAILURE
     Route: 048
     Dates: start: 20111123, end: 20130224
  18. LISINOPRIL [Concomitant]
     Route: 048
     Dates: start: 20120509
  19. BISOPROLOL [Concomitant]
     Indication: CARDIAC FAILURE
     Route: 048
     Dates: start: 20120218, end: 20120224
  20. BISOPROLOL [Concomitant]
     Route: 048
     Dates: start: 20120509
  21. METOPROLOL [Concomitant]
     Indication: PRODUCT USED FOR UNKNOWN INDICATION
     Route: 065

REACTIONS (3)
  - Cardiomyopathy [Recovered/Resolved with Sequelae]
  - Cardiac failure [Recovered/Resolved with Sequelae]
  - Cardiac failure [Recovered/Resolved with Sequelae]
